FAERS Safety Report 5165165-5 (Version None)
Quarter: 2006Q4

REPORT INFORMATION
  Report Type: 
  Country: None (occurrence: None)
  Receive Date: 20061127
  Receipt Date: 20061110
  Transmission Date: 20070319
  Serious: Yes (Disabling, Other)
  Sender: FDA-Public Use
  Company Number: 14999

PATIENT
  Age: 43 Year
  Sex: Female

DRUGS (5)
  1. CISPLATIN [Suspect]
     Indication: CERVIX CARCINOMA
  2. CISPLATIN [Suspect]
     Indication: CERVIX CARCINOMA
  3. PACLITAXEL [Suspect]
     Indication: CERVIX CARCINOMA
  4. 5-HT3 [Concomitant]
  5. METOCLOPRAMIDE [Concomitant]

REACTIONS (2)
  - ARTHRALGIA [None]
  - ARTHROPATHY [None]
